FAERS Safety Report 12104989 (Version 1)
Quarter: 2016Q1

REPORT INFORMATION
  Report Type: Spontaneous
  Country: FR (occurrence: FR)
  Receive Date: 20160223
  Receipt Date: 20160223
  Transmission Date: 20160526
  Serious: Yes (Hospitalization)
  Sender: FDA-Public Use
  Company Number: FR-AMGEN-FRASP2016019654

PATIENT
  Age: 80 Year
  Sex: Male

DRUGS (7)
  1. REVOLADE [Concomitant]
     Active Substance: ELTROMBOPAG
     Dosage: 1 DF, QD
     Route: 048
     Dates: end: 20150218
  2. APROVEL [Concomitant]
     Active Substance: IRBESARTAN
  3. SOTALOL. [Concomitant]
     Active Substance: SOTALOL
  4. PRIVIGEN [Concomitant]
     Active Substance: HUMAN IMMUNOGLOBULIN G
     Dosage: 100 G/L, UNK
     Route: 042
     Dates: start: 20150213
  5. NPLATE [Suspect]
     Active Substance: ROMIPLOSTIM
     Indication: IMMUNE THROMBOCYTOPENIC PURPURA
     Dosage: 90 MUG, (630 MCG),QWK
     Route: 058
     Dates: start: 201501, end: 20150218
  6. CORTANCYL [Concomitant]
     Active Substance: PREDNISONE
     Indication: IMMUNE THROMBOCYTOPENIC PURPURA
     Dosage: 1 DF, UNK
     Route: 048
     Dates: start: 20150218
  7. LEVOTHYROX [Concomitant]
     Active Substance: LEVOTHYROXINE
     Dosage: UNK

REACTIONS (2)
  - Pulmonary embolism [Recovered/Resolved]
  - Deep vein thrombosis [Recovered/Resolved]

NARRATIVE: CASE EVENT DATE: 20150218
